FAERS Safety Report 18090400 (Version 1)
Quarter: 2020Q3

REPORT INFORMATION
  Report Type: Spontaneous
  Country: FR (occurrence: FR)
  Receive Date: 20200730
  Receipt Date: 20200730
  Transmission Date: 20201103
  Serious: Yes (Hospitalization)
  Sender: FDA-Public Use
  Company Number: FR-TEVA-2020-FR-1806451

PATIENT
  Age: 12 Year
  Sex: Female

DRUGS (3)
  1. FOLINATE DE CALCIUM AGUETTANT 100 MG, POUDRE POUR SOLUTION INJECTABLE [Concomitant]
     Dosage: 12 MG/M2
     Route: 042
     Dates: start: 20200702, end: 20200702
  2. ONDANSETRON ACCORD 2 MG/ML, SOLUTION INJECTABLE [Concomitant]
     Active Substance: ONDANSETRON HYDROCHLORIDE
     Indication: PROPHYLAXIS OF NAUSEA AND VOMITING
     Dosage: 2 MG
     Route: 042
     Dates: start: 20200702, end: 20200702
  3. METHOTREXATE TEVA 10 POUR CENT (1 G/10 ML), SOLUTION INJECTABLE [Suspect]
     Active Substance: METHOTREXATE
     Indication: OSTEOSARCOMA
     Dosage: 12 G / M2 IN 1 LITER OF 5% GLUCOSE
     Route: 042
     Dates: start: 20200702, end: 20200702

REACTIONS (5)
  - Hypertransaminasaemia [Not Recovered/Not Resolved]
  - Diarrhoea [Recovered/Resolved]
  - Nausea [Recovered/Resolved]
  - Abdominal pain [Recovered/Resolved]
  - Headache [Recovered/Resolved]

NARRATIVE: CASE EVENT DATE: 20200702
